FAERS Safety Report 24747654 (Version 1)
Quarter: 2024Q4

REPORT INFORMATION
  Report Type: Spontaneous
  Country: US (occurrence: None)
  Receive Date: 20241217
  Receipt Date: 20241217
  Transmission Date: 20250114
  Serious: Yes (Hospitalization)
  Sender: Public
  Company Number: None

PATIENT
  Age: 57 Year
  Sex: Male

DRUGS (1)
  1. MYCOPHENOLIC ACID [Suspect]
     Active Substance: MYCOPHENOLIC ACID
     Indication: Systemic scleroderma
     Dates: start: 20241108

REACTIONS (3)
  - Upper respiratory tract infection [None]
  - Therapy interrupted [None]
  - Adverse drug reaction [None]

NARRATIVE: CASE EVENT DATE: 20241212
